FAERS Safety Report 16148362 (Version 5)
Quarter: 2019Q2

REPORT INFORMATION
  Report Type: Spontaneous
  Country: PT (occurrence: PT)
  Receive Date: 20190402
  Receipt Date: 20190530
  Transmission Date: 20190711
  Serious: Yes (Other)
  Sender: FDA-Public Use
  Company Number: PT-009507513-1904PRT000974

PATIENT
  Age: 6 Month
  Sex: Female

DRUGS (2)
  1. ELOCOM [Suspect]
     Active Substance: MOMETASONE FUROATE
     Indication: ECZEMA
     Dosage: 1 APPLICATION PER DAY AT NIGHT DURING 10 DAYS, QD
     Route: 003
     Dates: start: 20190124, end: 20190202
  2. PANDERMIL [Interacting]
     Active Substance: HYDROCORTISONE
     Indication: ECZEMA
     Dosage: 1 APPLICATION PER DAY EVERY DAY AT NIGHT IN THE FIRST 8 DAYS AND THEN 1 APPLICATION PER DAY 2 DAY, Q
     Route: 003

REACTIONS (2)
  - Diarrhoea [Recovered/Resolved]
  - Vomiting [Recovered/Resolved]

NARRATIVE: CASE EVENT DATE: 20190127
